FAERS Safety Report 25830225 (Version 1)
Quarter: 2025Q3

REPORT INFORMATION
  Report Type: Spontaneous
  Country: US (occurrence: US)
  Receive Date: 20250922
  Receipt Date: 20250922
  Transmission Date: 20251020
  Serious: Yes (Hospitalization, Other)
  Sender: COOPERSURGICAL
  Company Number: US-COOPERSURGICAL, INC.-2025CPS006738

PATIENT
  Sex: Female

DRUGS (1)
  1. PARAGARD T 380A [Suspect]
     Active Substance: COPPER
     Route: 015

REACTIONS (5)
  - Surgery [Unknown]
  - Colectomy [Unknown]
  - Fistula [Unknown]
  - Uterine perforation [Unknown]
  - Device dislocation [Unknown]
